FAERS Safety Report 8947514 (Version 1)
Quarter: 2012Q4

REPORT INFORMATION
  Report Type: 
  Country: FR (occurrence: FR)
  Receive Date: 20121204
  Receipt Date: 20121204
  Transmission Date: 20130627
  Serious: Yes (Hospitalization)
  Sender: FDA-Public Use
  Company Number: FR-ROCHE-1162656

PATIENT
  Age: 52 Year
  Sex: Female

DRUGS (7)
  1. COPEGUS [Suspect]
     Indication: HEPATITIS C
     Route: 065
     Dates: start: 201005, end: 201103
  2. COPEGUS [Suspect]
     Route: 050
     Dates: start: 201111, end: 201112
  3. PEGASYS [Suspect]
     Indication: HEPATITIS C
     Route: 050
     Dates: start: 201005, end: 201103
  4. PEGASYS [Suspect]
     Route: 050
     Dates: start: 201111, end: 201212
  5. INCIVO [Suspect]
     Indication: HEPATITIS C
     Route: 065
     Dates: start: 201111, end: 201112
  6. VIRAFERON [Concomitant]
     Route: 065
     Dates: end: 201005
  7. VIRAFERON [Concomitant]
     Route: 065
     Dates: start: 201103, end: 201105

REACTIONS (3)
  - Myalgia [Not Recovered/Not Resolved]
  - Arthralgia [Not Recovered/Not Resolved]
  - Extrapyramidal disorder [Not Recovered/Not Resolved]
